FAERS Safety Report 8257826-6 (Version None)
Quarter: 2012Q2

REPORT INFORMATION
  Report Type: 
  Country: None (occurrence: None)
  Receive Date: 20120404
  Receipt Date: 20120330
  Transmission Date: 20120825
  Serious: No
  Sender: FDA-Public Use
  Company Number: US-BIOGENIDEC-2012BI005110

PATIENT
  Age: 42 Year

DRUGS (3)
  1. PREDNISONE TAB [Concomitant]
     Indication: PREMEDICATION
  2. BENADRYL [Concomitant]
     Indication: PREMEDICATION
  3. AVONEX [Suspect]
     Indication: MULTIPLE SCLEROSIS
     Route: 030
     Dates: start: 20120201

REACTIONS (6)
  - RASH [None]
  - ALOPECIA [None]
  - SOMNOLENCE [None]
  - PRURITUS [None]
  - PAIN [None]
  - INFLUENZA LIKE ILLNESS [None]
